FAERS Safety Report 24280093 (Version 1)
Quarter: 2024Q3

REPORT INFORMATION
  Report Type: Spontaneous
  Country: CA (occurrence: CA)
  Receive Date: 20240904
  Receipt Date: 20240904
  Transmission Date: 20241017
  Serious: Yes (Other)
  Sender: OCTAPHARMA
  Company Number: CA-OCTA-ALB14424

PATIENT
  Sex: Female

DRUGS (1)
  1. ALBUMIN HUMAN [Suspect]
     Active Substance: ALBUMIN HUMAN
     Indication: Product used for unknown indication
     Route: 042

REACTIONS (4)
  - Dizziness [Unknown]
  - Dyspnoea [Unknown]
  - Feeling abnormal [Unknown]
  - Flushing [Unknown]
